FAERS Safety Report 7106567-7 (Version None)
Quarter: 2010Q4

REPORT INFORMATION
  Report Type: 
  Country: None (occurrence: None)
  Receive Date: 20101116
  Receipt Date: 20101111
  Transmission Date: 20110411
  Serious: Yes (Hospitalization)
  Sender: FDA-Public Use
  Company Number: US-GILEAD-2010-0032578

PATIENT
  Sex: Female

DRUGS (13)
  1. LETAIRIS [Suspect]
     Indication: PULMONARY ARTERIAL HYPERTENSION
     Route: 048
     Dates: start: 20071011
  2. LASIX [Concomitant]
  3. ASPIRIN [Concomitant]
  4. LISINOPRIL [Concomitant]
  5. COZAAR [Concomitant]
  6. VICODIN [Concomitant]
  7. SYNTHROID [Concomitant]
  8. POTASSIUM CHLORIDE [Concomitant]
  9. TORADOL [Concomitant]
  10. PROZAC [Concomitant]
  11. PREDNISONE [Concomitant]
  12. PRILOSEC [Concomitant]
  13. PLAQUENIL [Concomitant]

REACTIONS (4)
  - CYSTITIS [None]
  - KIDNEY INFECTION [None]
  - NEPHROLITHIASIS [None]
  - SEPSIS [None]
